FAERS Safety Report 9442077 (Version 1)
Quarter: 2013Q3

REPORT INFORMATION
  Report Type: Spontaneous
  Country: RO (occurrence: RO)
  Receive Date: 20130806
  Receipt Date: 20130806
  Transmission Date: 20140515
  Serious: Yes (Other)
  Sender: FDA-Public Use
  Company Number: RO-AMGEN-ROUSP2013053902

PATIENT
  Age: 60 Year
  Sex: Female
  Weight: 86 kg

DRUGS (8)
  1. NEULASTA [Suspect]
     Indication: PROPHYLAXIS
     Dosage: 6 MG, AT 3 WEEKS
     Route: 058
     Dates: start: 20130524, end: 20130627
  2. NEULASTA [Suspect]
     Indication: BREAST CANCER
  3. DOCETAXEL [Concomitant]
     Indication: BREAST CANCER
     Dosage: 130 MG, 3 WEEKS
     Route: 042
     Dates: start: 20130401
  4. DOCETAXEL [Concomitant]
     Dosage: 130 MG, 3 WEEKS
     Route: 042
     Dates: start: 20130612, end: 20130612
  5. EPIRUBICIN [Concomitant]
     Indication: BREAST CANCER
     Dosage: 100 MG, 3 WEEKS
     Route: 042
     Dates: start: 20130401
  6. EPIRUBICIN [Concomitant]
     Dosage: 100 MG, 3 WEEKS
     Route: 042
     Dates: start: 20130612, end: 20130612
  7. ENDOXAN                            /00021101/ [Concomitant]
     Indication: BREAST CANCER
     Dosage: 800 MG, 3 WEEKS
     Route: 042
     Dates: start: 20130401
  8. ENDOXAN                            /00021101/ [Concomitant]
     Dosage: 800 MG, 3 WEEKS
     Route: 042
     Dates: start: 20130612, end: 20130612

REACTIONS (3)
  - Circumoral oedema [Recovered/Resolved]
  - Face oedema [Unknown]
  - Rash [Recovering/Resolving]
